FAERS Safety Report 23719834 (Version 1)
Quarter: 2024Q2

REPORT INFORMATION
  Report Type: Spontaneous
  Country: ES (occurrence: ES)
  Receive Date: 20240408
  Receipt Date: 20240408
  Transmission Date: 20240716
  Serious: Yes (Other)
  Sender: FDA-Public Use
  Company Number: None

PATIENT

DRUGS (13)
  1. XCOPRI [Suspect]
     Active Substance: CENOBAMATE
     Indication: Epilepsy
     Dosage: 37.5 MILLIGRAM (37.5 MG,1 IN 24 HR)
     Route: 048
     Dates: start: 20230508, end: 20231031
  2. XCOPRI [Suspect]
     Active Substance: CENOBAMATE
     Indication: Frontal lobe epilepsy
     Dosage: 50 MILLIGRAM (50 MG,1 IN 24 HR)
     Route: 048
     Dates: start: 20231101, end: 20231130
  3. XCOPRI [Suspect]
     Active Substance: CENOBAMATE
     Dosage: 100 MILLIGRAM, (100 MG,1 IN 24 HR)
     Route: 048
     Dates: start: 20231201, end: 20240213
  4. ABILIFY [Concomitant]
     Active Substance: ARIPIPRAZOLE
     Indication: Epilepsy
     Dosage: 6 MILLILITER (6 ML,24 HR)
     Route: 048
     Dates: start: 20190709
  5. ABILIFY [Concomitant]
     Active Substance: ARIPIPRAZOLE
     Indication: Frontal lobe epilepsy
  6. CLOBAZAM [Concomitant]
     Active Substance: CLOBAZAM
     Indication: Epilepsy
     Dosage: 20 MILLIGRAM (20 MG,12 HR)
     Route: 048
     Dates: start: 20190325
  7. CLOBAZAM [Concomitant]
     Active Substance: CLOBAZAM
     Indication: Frontal lobe epilepsy
  8. CARBAMAZEPINE [Concomitant]
     Active Substance: CARBAMAZEPINE
     Indication: Epilepsy
     Dosage: 600 MILLIGRAM (600 MG,8 HR)
     Route: 048
     Dates: start: 20211209, end: 20240213
  9. CARBAMAZEPINE [Concomitant]
     Active Substance: CARBAMAZEPINE
     Indication: Frontal lobe epilepsy
  10. ETOSUXIMIDA [Concomitant]
     Indication: Epilepsy
     Dosage: 500 MILLIGRAM (500 MG,12 HR)
     Route: 048
     Dates: start: 20230613
  11. ETOSUXIMIDA [Concomitant]
     Indication: Frontal lobe epilepsy
  12. VIMPAT [Concomitant]
     Active Substance: LACOSAMIDE
     Indication: Frontal lobe epilepsy
     Dosage: 20 MILLILITER (20 ML,8 HR)
     Route: 048
     Dates: start: 20190523
  13. VIMPAT [Concomitant]
     Active Substance: LACOSAMIDE
     Indication: Epilepsy

REACTIONS (2)
  - Off label use [Recovered/Resolved]
  - Suicidal ideation [Recovered/Resolved]

NARRATIVE: CASE EVENT DATE: 20240110
